FAERS Safety Report 9359814 (Version 1)
Quarter: 2013Q2

REPORT INFORMATION
  Report Type: Report from Study
  Country: US (occurrence: US)
  Receive Date: 20130621
  Receipt Date: 20130621
  Transmission Date: 20140414
  Serious: Yes (Hospitalization, Other)
  Sender: FDA-Public Use
  Company Number: US-ROCHE-1239730

PATIENT
  Age: 81 Year
  Sex: Male

DRUGS (1)
  1. LUCENTIS [Suspect]
     Indication: AGE-RELATED MACULAR DEGENERATION
     Dosage: DOSE INFORMATION UNKNOWN
     Route: 065

REACTIONS (3)
  - Cerebrovascular accident [Unknown]
  - Road traffic accident [Unknown]
  - Head injury [Unknown]
